FAERS Safety Report 8029980 (Version 4)
Quarter: 2013Q2

REPORT INFORMATION
  Report Type: Report from Study
  Country: CA (occurrence: CA)
  Receive Date: 20110712
  Receipt Date: 20130520
  Transmission Date: 20140414
  Serious: Yes (Hospitalization)
  Sender: FDA-Public Use
  Company Number: CA-BRISTOL-MYERS SQUIBB COMPANY-15880081

PATIENT
  Age: 62 Year
  Sex: Female

DRUGS (5)
  1. BLINDED: SAXAGLIPTIN [Suspect]
     Indication: TYPE 2 DIABETES MELLITUS
     Dosage: LAST DOSE: 03MAR2013
     Dates: start: 20110104
  2. METFORMIN HCL [Suspect]
     Indication: TYPE 2 DIABETES MELLITUS
  3. NOVOLIN [Suspect]
     Indication: TYPE 2 DIABETES MELLITUS
  4. BLINDED: PLACEBO [Suspect]
     Indication: TYPE 2 DIABETES MELLITUS
     Dosage: LAST DOSE: 03MAR2013
     Dates: start: 20110104
  5. ASPIRIN [Concomitant]

REACTIONS (2)
  - Urosepsis [Recovered/Resolved]
  - Pancreatitis [Recovered/Resolved]
